FAERS Safety Report 5108784-4 (Version None)
Quarter: 2006Q3

REPORT INFORMATION
  Report Type: 
  Country: None (occurrence: None)
  Receive Date: 20060920
  Receipt Date: 20060913
  Transmission Date: 20061208
  Serious: Yes (Death)
  Sender: FDA-Public Use
  Company Number: US-BRISTOL-MYERS SQUIBB COMPANY-13507983

PATIENT
  Age: 51 Year
  Sex: Female

DRUGS (8)
  1. MEGACE [Suspect]
     Indication: DECREASED APPETITE
     Dates: start: 20060706
  2. DURAGESIC-100 [Concomitant]
  3. OXYCONTIN [Concomitant]
  4. ARANESP [Concomitant]
  5. MAGIC MOUTHWASH [Concomitant]
  6. DILAUDID [Concomitant]
     Dates: start: 20060601
  7. ABRAXANE [Concomitant]
  8. ZOMETA [Concomitant]

REACTIONS (1)
  - DEATH [None]
